FAERS Safety Report 20223381 (Version 4)
Quarter: 2024Q2

REPORT INFORMATION
  Report Type: Spontaneous
  Country: US (occurrence: US)
  Receive Date: 20211223
  Receipt Date: 20240501
  Transmission Date: 20240716
  Serious: No
  Sender: FDA-Public Use
  Company Number: US-GILEAD-2021-0561979

PATIENT
  Age: 57 Year
  Sex: Male
  Weight: 90.719 kg

DRUGS (37)
  1. TRUVADA [Suspect]
     Active Substance: EMTRICITABINE\TENOFOVIR DISOPROXIL FUMARATE
     Indication: HIV infection
     Dosage: UNK
     Route: 048
     Dates: start: 2009
  2. TRUVADA [Suspect]
     Active Substance: EMTRICITABINE\TENOFOVIR DISOPROXIL FUMARATE
     Dosage: UNK
     Route: 048
     Dates: start: 2007, end: 201708
  3. TRUVADA [Suspect]
     Active Substance: EMTRICITABINE\TENOFOVIR DISOPROXIL FUMARATE
     Dosage: UNK
     Route: 048
     Dates: start: 2010, end: 201708
  4. TRUVADA [Suspect]
     Active Substance: EMTRICITABINE\TENOFOVIR DISOPROXIL FUMARATE
     Dosage: UNK
     Route: 048
     Dates: start: 201101, end: 201708
  5. BIKTARVY [Concomitant]
     Active Substance: BICTEGRAVIR SODIUM\EMTRICITABINE\TENOFOVIR ALAFENAMIDE FUMARATE
  6. DESCOVY [Concomitant]
     Active Substance: EMTRICITABINE\TENOFOVIR ALAFENAMIDE FUMARATE
  7. ISENTRESS [Concomitant]
     Active Substance: RALTEGRAVIR POTASSIUM
  8. ADVAIR HFA [Concomitant]
     Active Substance: FLUTICASONE PROPIONATE\SALMETEROL XINAFOATE
  9. ALBUTEROL SULFATE [Concomitant]
     Active Substance: ALBUTEROL SULFATE
  10. AMLODIPINE [Concomitant]
     Active Substance: AMLODIPINE BESYLATE
  11. ARIPIPRAZOLE [Concomitant]
     Active Substance: ARIPIPRAZOLE
  12. BENZTROPINE [Concomitant]
     Active Substance: BENZTROPINE
  13. BUSPIRONE [Concomitant]
     Active Substance: BUSPIRONE HYDROCHLORIDE
  14. CHANTIX [Concomitant]
     Active Substance: VARENICLINE TARTRATE
  15. CLONIDINE [Concomitant]
     Active Substance: CLONIDINE
  16. CYCLOBENZAPRINE [Concomitant]
     Active Substance: CYCLOBENZAPRINE
  17. DIAZEPAM [Concomitant]
     Active Substance: DIAZEPAM
  18. FENTANYL [Concomitant]
     Active Substance: FENTANYL\FENTANYL CITRATE
  19. FLUTICASONE [Concomitant]
     Active Substance: FLUTICASONE
  20. FOLIC ACID [Concomitant]
     Active Substance: FOLIC ACID
  21. IBUPROFEN [Concomitant]
     Active Substance: IBUPROFEN
  22. LAMOTRIGINE [Concomitant]
     Active Substance: LAMOTRIGINE
  23. LIDODERM [Concomitant]
     Active Substance: LIDOCAINE
  24. LINZESS [Concomitant]
     Active Substance: LINACLOTIDE
  25. NYSTATIN [Concomitant]
     Active Substance: NYSTATIN
  26. OXYCODONE [Concomitant]
     Active Substance: OXYCODONE\OXYCODONE HYDROCHLORIDE
  27. PROAIR HFA [Concomitant]
     Active Substance: ALBUTEROL SULFATE
  28. QUETIAPINE [Concomitant]
     Active Substance: QUETIAPINE
  29. RISPERIDONE [Concomitant]
     Active Substance: RISPERIDONE
  30. ROZEREM [Concomitant]
     Active Substance: RAMELTEON
  31. SEROQUEL [Concomitant]
     Active Substance: QUETIAPINE FUMARATE
  32. SPIRIVA RESPIMAT [Concomitant]
     Active Substance: TIOTROPIUM BROMIDE
  33. SUBOXONE [Concomitant]
     Active Substance: BUPRENORPHINE HYDROCHLORIDE\NALOXONE HYDROCHLORIDE
  34. TAMSULOSIN [Concomitant]
     Active Substance: TAMSULOSIN
  35. TIVICAY [Concomitant]
     Active Substance: DOLUTEGRAVIR SODIUM
  36. TRAZODONE [Concomitant]
     Active Substance: TRAZODONE HYDROCHLORIDE
  37. METHADONE [Concomitant]
     Active Substance: METHADONE HYDROCHLORIDE

REACTIONS (12)
  - Bone demineralisation [Unknown]
  - Osteopenia [Not Recovered/Not Resolved]
  - Rib fracture [Not Recovered/Not Resolved]
  - Pain [Not Recovered/Not Resolved]
  - Emotional distress [Not Recovered/Not Resolved]
  - Anxiety [Not Recovered/Not Resolved]
  - Anhedonia [Not Recovered/Not Resolved]
  - Musculoskeletal chest pain [Not Recovered/Not Resolved]
  - Depression [Not Recovered/Not Resolved]
  - Upper limb fracture [Not Recovered/Not Resolved]
  - Wrist fracture [Not Recovered/Not Resolved]
  - Quality of life decreased [Unknown]

NARRATIVE: CASE EVENT DATE: 20170701
